FAERS Safety Report 4535670-0 (Version None)
Quarter: 2004Q4

REPORT INFORMATION
  Report Type: 
  Country: None (occurrence: None)
  Receive Date: 20041223
  Receipt Date: 20031110
  Transmission Date: 20050328
  Serious: No
  Sender: FDA-Public Use
  Company Number: US-GLAXOSMITHKLINE-A0439009A

PATIENT
  Sex: Female

DRUGS (7)
  1. FLONASE [Suspect]
     Indication: ILL-DEFINED DISORDER
     Dosage: 100MCG PER DAY
     Route: 045
  2. BALDRIAN [Concomitant]
  3. METHOTREXATE [Concomitant]
  4. PREDNISONE [Concomitant]
  5. ARAVA [Concomitant]
  6. SYNTHROID [Concomitant]
  7. HCT [Concomitant]
     Indication: HYPERTENSION

REACTIONS (2)
  - DRUG INEFFECTIVE [None]
  - DRUG TOLERANCE [None]
